FAERS Safety Report 8885132 (Version 1)
Quarter: 2012Q4

REPORT INFORMATION
  Report Type: 
  Country: US (occurrence: US)
  Receive Date: 20121105
  Receipt Date: 20121105
  Transmission Date: 20130627
  Serious: Yes (Hospitalization)
  Sender: FDA-Public Use
  Company Number: US-BIOGENIDEC-2012BI049373

PATIENT
  Age: 50 Year
  Sex: Male

DRUGS (2)
  1. TYSABRI [Suspect]
     Indication: MULTIPLE SCLEROSIS
     Route: 042
     Dates: start: 20111229
  2. PERCOCET [Concomitant]
     Indication: ARTHRITIS

REACTIONS (3)
  - Gastroenteritis viral [Recovered/Resolved]
  - Arthritis [Recovered/Resolved]
  - Hepatic enzyme increased [Unknown]
